FAERS Safety Report 5720890-X (Version None)
Quarter: 2008Q2

REPORT INFORMATION
  Report Type: 
  Country: None (occurrence: None)
  Receive Date: 20080424
  Receipt Date: 20080409
  Transmission Date: 20081010
  Serious: Yes (Other)
  Sender: FDA-Public Use
  Company Number: SPV1-2008-00800

PATIENT
  Age: 5 Year
  Sex: Male
  Weight: 19.5 kg

DRUGS (4)
  1. ADDERALL XR 30 [Suspect]
     Indication: ATTENTION DEFICIT/HYPERACTIVITY DISORDER
     Dosage: 5 MG, 1X/DAY:QD, ORAL; 10 MG, 1X/DAY:QD, ORAL
     Route: 048
     Dates: start: 20080101, end: 20080101
  2. ADDERALL XR 30 [Suspect]
     Indication: ATTENTION DEFICIT/HYPERACTIVITY DISORDER
     Dosage: 5 MG, 1X/DAY:QD, ORAL; 10 MG, 1X/DAY:QD, ORAL
     Route: 048
     Dates: start: 20080101
  3. PROZAC /00724401/ (FLUOXETINE) [Concomitant]
  4. ALBUTEROL /00139501/ (SALBUTAMOL) [Concomitant]

REACTIONS (5)
  - ABNORMAL BEHAVIOUR [None]
  - AGGRESSION [None]
  - DRUG INEFFECTIVE [None]
  - OFF LABEL USE [None]
  - SUICIDAL IDEATION [None]
